FAERS Safety Report 25945780 (Version 2)
Quarter: 2025Q4

REPORT INFORMATION
  Report Type: Spontaneous
  Country: US (occurrence: US)
  Receive Date: 20251021
  Receipt Date: 20251108
  Transmission Date: 20260118
  Serious: Yes (Hospitalization)
  Sender: SANOFI AVENTIS
  Company Number: US-SA-2025SA311909

PATIENT
  Age: 5 Year
  Sex: Male

DRUGS (1)
  1. LUMIZYME [Suspect]
     Active Substance: ALGLUCOSIDASE ALFA
     Dosage: 400 MG, BIM
     Route: 065
     Dates: end: 2025

REACTIONS (4)
  - Pyrexia [Unknown]
  - Catheter site infection [Unknown]
  - Nosocomial infection [Unknown]
  - Limb operation [Unknown]

NARRATIVE: CASE EVENT DATE: 20250101
